FAERS Safety Report 11786830 (Version 1)
Quarter: 2015Q4

REPORT INFORMATION
  Report Type: Spontaneous
  Country: DE (occurrence: DE)
  Receive Date: 20151130
  Receipt Date: 20151130
  Transmission Date: 20160305
  Serious: Yes (Other)
  Sender: FDA-Public Use
  Company Number: DE-JNJFOC-20150506723

PATIENT
  Age: 93 Year
  Sex: Female

DRUGS (8)
  1. ASPIRIN. [Concomitant]
     Active Substance: ASPIRIN
     Route: 048
  2. AMLODIPINE [Concomitant]
     Active Substance: AMLODIPINE BESYLATE
     Route: 048
     Dates: start: 20150220, end: 20150304
  3. SIMVASTATINE [Concomitant]
     Active Substance: SIMVASTATIN
     Route: 048
  4. TORASEMIDE [Concomitant]
     Active Substance: TORSEMIDE
     Route: 048
     Dates: start: 20150304
  5. RISPERIDON [Suspect]
     Active Substance: RISPERIDONE
     Indication: PRODUCT USED FOR UNKNOWN INDICATION
     Route: 048
     Dates: start: 20150228, end: 20150303
  6. BELOKEN [Interacting]
     Active Substance: METOPROLOL TARTRATE
     Indication: PRODUCT USED FOR UNKNOWN INDICATION
     Route: 048
  7. DELIX PROTECT [Concomitant]
     Route: 048
     Dates: end: 20150310
  8. TORASEMIDE [Concomitant]
     Active Substance: TORSEMIDE
     Route: 048
     Dates: end: 20150303

REACTIONS (3)
  - Language disorder [Recovered/Resolved]
  - Drug interaction [Unknown]
  - Dysarthria [None]

NARRATIVE: CASE EVENT DATE: 20150303
